FAERS Safety Report 9288926 (Version 1)
Quarter: 2013Q2

REPORT INFORMATION
  Report Type: Report from Study
  Country: US (occurrence: US)
  Receive Date: 20130514
  Receipt Date: 20130514
  Transmission Date: 20140414
  Serious: Yes (Hospitalization, Other)
  Sender: FDA-Public Use
  Company Number: US-TEVA-404366USA

PATIENT
  Age: 55 Year
  Sex: Male

DRUGS (1)
  1. COPAXONE [Suspect]
     Indication: MULTIPLE SCLEROSIS
     Dates: start: 20120615, end: 20130326

REACTIONS (4)
  - Fall [Recovered/Resolved]
  - Spinal fracture [Recovering/Resolving]
  - Clostridium difficile infection [Recovered/Resolved]
  - Immunosuppression [Recovered/Resolved]
